FAERS Safety Report 12455086 (Version 4)
Quarter: 2020Q3

REPORT INFORMATION
  Report Type: Report from Study
  Country: US (occurrence: US)
  Receive Date: 20160610
  Receipt Date: 20161123
  Transmission Date: 20201105
  Serious: Yes (Death, Hospitalization)
  Sender: FDA-Public Use
  Company Number: US-JNJFOC-20160607108

PATIENT
  Age: 73 Year
  Sex: Male

DRUGS (3)
  1. IBRUTINIB [Suspect]
     Active Substance: IBRUTINIB
     Route: 048
  2. MEDI4736 [Suspect]
     Active Substance: DURVALUMAB
     Indication: NEOPLASM
     Route: 042
     Dates: start: 20160504
  3. IBRUTINIB [Suspect]
     Active Substance: IBRUTINIB
     Indication: NEOPLASM
     Route: 048
     Dates: start: 20160504

REACTIONS (1)
  - Pneumonia bacterial [Fatal]

NARRATIVE: CASE EVENT DATE: 20160530
